FAERS Safety Report 4668376-8 (Version None)
Quarter: 2005Q2

REPORT INFORMATION
  Report Type: 
  Country: None (occurrence: None)
  Receive Date: 20050523
  Receipt Date: 20040630
  Transmission Date: 20051028
  Serious: Yes (Other)
  Sender: FDA-Public Use
  Company Number: PHNU2004DE02332

PATIENT
  Sex: Female
  Weight: 60 kg

DRUGS (5)
  1. AREDIA [Suspect]
     Dosage: 90 MG, QMO
     Dates: start: 19960301, end: 20011001
  2. ZOMETA [Suspect]
     Indication: PLASMACYTOMA
     Dosage: 4 MG, QMO
     Dates: start: 20020801, end: 20040401
  3. CHEMOTHERAPEUTICS,OTHER [Concomitant]
     Route: 065
  4. RADIOTHERAPY [Concomitant]
     Route: 065
  5. THALIDOMID [Concomitant]
     Indication: PLASMACYTOMA
     Dosage: 100 MG, QD
     Route: 048
     Dates: start: 20021201, end: 20040401

REACTIONS (5)
  - ACTINOMYCOSIS [None]
  - BIOPSY SITE UNSPECIFIED ABNORMAL [None]
  - OSTEONECROSIS [None]
  - PRIMARY SEQUESTRUM [None]
  - WOUND DEBRIDEMENT [None]
